FAERS Safety Report 8537533 (Version 4)
Quarter: 2013Q1

REPORT INFORMATION
  Report Type: Spontaneous
  Country: US (occurrence: None)
  Receive Date: 20120424
  Receipt Date: 20121120
  Transmission Date: 20140127
  Serious: Yes (Other)
  Sender: FDA-Public Use
  Company Number: 1204-191

PATIENT
  Age: 88 Year
  Sex: Male
  Weight: 79.38 kg

DRUGS (1)
  1. EYLEA [Suspect]
     Indication: RETINAL DEGENERATION
     Dosage: 1 IN 2 M
     Dates: start: 20120320, end: 201205

REACTIONS (4)
  - Eye irritation [None]
  - Visual impairment [None]
  - Keratitis [None]
  - Corneal abrasion [None]
